FAERS Safety Report 4674064-4 (Version None)
Quarter: 2005Q2

REPORT INFORMATION
  Report Type: 
  Country: None (occurrence: None)
  Receive Date: 20050525
  Receipt Date: 20050509
  Transmission Date: 20051028
  Serious: Yes (Hospitalization)
  Sender: FDA-Public Use
  Company Number: 200510370BVD

PATIENT
  Age: 49 Year
  Sex: Female
  Weight: 83 kg

DRUGS (5)
  1. ASPIRIN COMPLEX [Suspect]
     Indication: HEADACHE
     Dosage: 1000 MG, TOTAL DAILY, ORAL
     Route: 048
     Dates: start: 20041227
  2. IBUPROFEN [Suspect]
     Indication: SINUSITIS
     Dosage: ORAL
     Route: 048
     Dates: start: 20041201
  3. CORTISON (CORTISON) [Suspect]
     Indication: SINUSITIS
     Dosage: ORAL
     Route: 048
     Dates: start: 20041201
  4. ASPIRIN [Suspect]
     Indication: CARDIAC DISORDER
     Dosage: ORAL
     Route: 048
     Dates: start: 20040401
  5. L-THYROXIN [Concomitant]

REACTIONS (2)
  - GASTRIC HAEMORRHAGE [None]
  - GASTRITIS [None]
